FAERS Safety Report 6868038-2 (Version None)
Quarter: 2010Q3

REPORT INFORMATION
  Report Type: 
  Country: None (occurrence: None)
  Receive Date: 20100722
  Receipt Date: 20080512
  Transmission Date: 20110219
  Serious: No
  Sender: FDA-Public Use
  Company Number: US-PFIZER INC-2008041164

PATIENT
  Sex: Female

DRUGS (4)
  1. CHANTIX [Suspect]
     Indication: SMOKING CESSATION THERAPY
     Dates: start: 20080408, end: 20080501
  2. PRAVASTATIN [Concomitant]
     Indication: BLOOD CHOLESTEROL ABNORMAL
  3. HERBAL PREPARATION [Concomitant]
  4. VITAMINS [Concomitant]

REACTIONS (6)
  - ABDOMINAL DISTENSION [None]
  - DYSGEUSIA [None]
  - HYPERPHAGIA [None]
  - NAUSEA [None]
  - NIGHTMARE [None]
  - POOR QUALITY SLEEP [None]
